FAERS Safety Report 24222676 (Version 2)
Quarter: 2024Q3

REPORT INFORMATION
  Report Type: Spontaneous
  Country: US (occurrence: US)
  Receive Date: 20240819
  Receipt Date: 20240919
  Transmission Date: 20241017
  Serious: Yes (Hospitalization, Other)
  Sender: BAYER
  Company Number: US-BAYER-2024A116895

PATIENT
  Age: 40 Year
  Sex: Male

DRUGS (2)
  1. JIVI [Suspect]
     Active Substance: DAMOCTOCOG ALFA PEGOL
     Indication: Prophylaxis
     Dosage: UNK, TWICE PER WEEK PRN
     Route: 042
     Dates: start: 202212
  2. JIVI [Suspect]
     Active Substance: DAMOCTOCOG ALFA PEGOL
     Indication: Factor VIII deficiency
     Dosage: JIVI 3000/ INFUSE 3600 UNITS TWICE PER WEEK
     Route: 042
     Dates: start: 20221213

REACTIONS (4)
  - Haemarthrosis [None]
  - Haemarthrosis [Not Recovered/Not Resolved]
  - Haemarthrosis [None]
  - Haemarthrosis [None]

NARRATIVE: CASE EVENT DATE: 20240808
